FAERS Safety Report 25206188 (Version 1)
Quarter: 2025Q2

REPORT INFORMATION
  Report Type: Spontaneous
  Country: FR (occurrence: FR)
  Receive Date: 20250417
  Receipt Date: 20250417
  Transmission Date: 20250717
  Serious: Yes (Other)
  Sender: EISAI
  Company Number: None

PATIENT
  Age: 75 Year
  Sex: Male

DRUGS (3)
  1. LENVIMA [Suspect]
     Active Substance: LENVATINIB
     Indication: Thyroid cancer metastatic
     Dates: start: 20231006, end: 20240101
  2. LENVIMA [Suspect]
     Active Substance: LENVATINIB
     Dates: start: 20240102, end: 20250207
  3. LENVIMA [Suspect]
     Active Substance: LENVATINIB
     Dates: start: 20250310, end: 20250317

REACTIONS (2)
  - Pancreatitis acute [Recovering/Resolving]
  - Hepatitis [Recovering/Resolving]

NARRATIVE: CASE EVENT DATE: 20250207
